FAERS Safety Report 25769517 (Version 2)
Quarter: 2025Q3

REPORT INFORMATION
  Report Type: Spontaneous
  Country: EU (occurrence: EU)
  Receive Date: 20250906
  Receipt Date: 20250917
  Transmission Date: 20251021
  Serious: Yes (Death, Other)
  Sender: ROCHE
  Company Number: None

PATIENT
  Age: 58 Year
  Sex: Female

DRUGS (4)
  1. BEVACIZUMAB [Suspect]
     Active Substance: BEVACIZUMAB
     Indication: Vaginal cancer metastatic
     Dosage: 15 MILLIGRAM/SQ. METER, Q3WK
     Route: 065
  2. CARBOPLATIN [Suspect]
     Active Substance: CARBOPLATIN
     Indication: Vaginal cancer metastatic
     Dosage: AUC 5
     Route: 065
  3. PACLITAXEL [Suspect]
     Active Substance: PACLITAXEL
     Indication: Vaginal cancer metastatic
     Dosage: 135 MILLIGRAM/SQ. METER
     Route: 065
  4. PEMBROLIZUMAB [Suspect]
     Active Substance: PEMBROLIZUMAB
     Indication: Vaginal cancer metastatic
     Dosage: 200 MILLIGRAM/SQ. METER
     Route: 065

REACTIONS (4)
  - Death [Fatal]
  - Adenocarcinoma metastatic [Unknown]
  - Metastases to skin [Unknown]
  - Off label use [Unknown]
